FAERS Safety Report 5446527-5 (Version None)
Quarter: 2007Q3

REPORT INFORMATION
  Report Type: 
  Country: None (occurrence: None)
  Receive Date: 20070907
  Receipt Date: 20060817
  Transmission Date: 20080115
  Serious: No
  Sender: FDA-Public Use
  Company Number: A0617130A

PATIENT
  Age: 25 Year
  Sex: Female

DRUGS (2)
  1. ALBENZA [Suspect]
     Indication: INFECTION PARASITIC
     Route: 048
     Dates: start: 20060401
  2. UNKNOWN MEDICATION [Concomitant]

REACTIONS (5)
  - ABDOMINAL PAIN UPPER [None]
  - ALOPECIA [None]
  - CHROMATURIA [None]
  - DIZZINESS [None]
  - PHARMACEUTICAL PRODUCT COMPLAINT [None]
